FAERS Safety Report 13042594 (Version 3)
Quarter: 2017Q1

REPORT INFORMATION
  Report Type: Report from Study
  Country: US (occurrence: US)
  Receive Date: 20161219
  Receipt Date: 20170303
  Transmission Date: 20170428
  Serious: Yes (Death, Hospitalization)
  Sender: FDA-Public Use
  Company Number: US-EXELIXIS-CABO-16007741

PATIENT
  Age: 90 Year
  Sex: Female

DRUGS (15)
  1. VOTRIENT [Concomitant]
     Active Substance: PAZOPANIB HYDROCHLORIDE
  2. ALBUTEROL. [Concomitant]
     Active Substance: ALBUTEROL
  3. TIMOLOL. [Concomitant]
     Active Substance: TIMOLOL
  4. DORZOLAMIDE HCL [Concomitant]
     Active Substance: DORZOLAMIDE HYDROCHLORIDE
  5. BRIMONIDINE TARTRATE. [Concomitant]
     Active Substance: BRIMONIDINE TARTRATE
  6. PRAVASTATIN. [Concomitant]
     Active Substance: PRAVASTATIN
  7. CABOMETYX [Suspect]
     Active Substance: CABOZANTINIB S-MALATE
     Indication: RENAL CANCER
     Dosage: 60 MG, QD
     Route: 048
     Dates: start: 201607, end: 201702
  8. METOPROLOL. [Concomitant]
     Active Substance: METOPROLOL
  9. THYROID [Concomitant]
     Active Substance: LEVOTHYROXINE\LIOTHYRONINE
  10. DRONABINOL. [Concomitant]
     Active Substance: DRONABINOL
  11. SULFAMETHOXAZOLE [Concomitant]
     Active Substance: SULFAMETHOXAZOLE
  12. IPRATROPIUM [Concomitant]
     Active Substance: IPRATROPIUM
  13. CABOMETYX [Suspect]
     Active Substance: CABOZANTINIB S-MALATE
     Indication: SOFT TISSUE SARCOMA
     Dosage: 20 MG, QD
     Route: 048
  14. AFINITOR [Concomitant]
     Active Substance: EVEROLIMUS
  15. PANTOPRAZOLE [Concomitant]
     Active Substance: PANTOPRAZOLE SODIUM

REACTIONS (3)
  - Death [Fatal]
  - Pulmonary oedema [Unknown]
  - Dysphagia [Unknown]

NARRATIVE: CASE EVENT DATE: 20170218
